FAERS Safety Report 5341117-7 (Version None)
Quarter: 2007Q2

REPORT INFORMATION
  Report Type: 
  Country: None (occurrence: None)
  Receive Date: 20070405
  Receipt Date: 20061024
  Transmission Date: 20071010
  Serious: Yes (Hospitalization)
  Sender: FDA-Public Use
  Company Number: 2006P1000500

PATIENT
  Age: 58 Year
  Sex: Male

DRUGS (6)
  1. BUSULFAN (BUSULFAN) [Suspect]
     Indication: STEM CELL TRANSPLANT
     Dosage: 132 MG;QD;IV
     Route: 042
     Dates: start: 20060804, end: 20060805
  2. CYCLOPHOSPHAMIDE [Concomitant]
  3. THIOTEPA [Concomitant]
  4. NEFOPAM [Concomitant]
  5. ONDANSETRON [Concomitant]
  6. ESOMPERAZOLE [Concomitant]

REACTIONS (1)
  - PNEUMONIA [None]
